FAERS Safety Report 8960486 (Version 1)
Quarter: 2012Q4

REPORT INFORMATION
  Report Type: Spontaneous
  Country: US (occurrence: None)
  Receive Date: 20121207
  Receipt Date: 20121207
  Transmission Date: 20130627
  Serious: No
  Sender: FDA-Public Use
  Company Number: None

PATIENT
  Age: 58 Year
  Sex: Female
  Weight: 58.97 kg

DRUGS (3)
  1. MODAFINIL [Suspect]
     Indication: DEPRESSION
     Dosage: 300 mg daily po
     Route: 048
     Dates: start: 20120801, end: 20120820
  2. MODAFINIL [Suspect]
     Indication: DEPRESSION
     Dates: start: 20120901, end: 20120905
  3. LAMICTAL [Concomitant]

REACTIONS (5)
  - Anxiety [None]
  - Agitation [None]
  - Nervousness [None]
  - Restlessness [None]
  - Product substitution issue [None]
